FAERS Safety Report 18280265 (Version 5)
Quarter: 2021Q1

REPORT INFORMATION
  Report Type: Spontaneous
  Country: JP (occurrence: JP)
  Receive Date: 20200917
  Receipt Date: 20210309
  Transmission Date: 20210419
  Serious: Yes (Hospitalization, Other)
  Sender: FDA-Public Use
  Company Number: JP-NOVOPROD-748859

PATIENT
  Age: 35 Year
  Sex: Female
  Weight: 97.3 kg

DRUGS (18)
  1. AMARYL [Concomitant]
     Active Substance: GLIMEPIRIDE
     Indication: TYPE 2 DIABETES MELLITUS
     Dosage: 3 MG
     Route: 048
  2. JARDIANCE [Concomitant]
     Active Substance: EMPAGLIFLOZIN
     Indication: TYPE 2 DIABETES MELLITUS
     Dosage: 10 MG
     Route: 048
     Dates: start: 20170206
  3. THEO?DUR [Concomitant]
     Active Substance: THEOPHYLLINE ANHYDROUS
     Indication: ASTHMA
     Dosage: 400MG
     Route: 048
  4. ACTOS [Concomitant]
     Active Substance: PIOGLITAZONE HYDROCHLORIDE
     Indication: TYPE 2 DIABETES MELLITUS
     Dosage: 30MG
     Route: 048
     Dates: start: 20190902
  5. CEREKINON [Concomitant]
     Active Substance: TRIMEBUTINE
     Indication: CHRONIC GASTRITIS
     Dosage: 600MG
     Route: 048
  6. RISPERDAL [Concomitant]
     Active Substance: RISPERIDONE
     Indication: SCHIZOPHRENIA
     Dosage: 8 MG
     Route: 048
  7. TRESIBA [Concomitant]
     Active Substance: INSULIN DEGLUDEC
     Indication: TYPE 2 DIABETES MELLITUS
     Dosage: UNK, 16IU, ONCE PER WEEK(IRREGULAR ADMINISTRATION)
     Route: 058
     Dates: start: 20170703
  8. LIVALO [Concomitant]
     Active Substance: PITAVASTATIN CALCIUM
     Indication: DIABETIC NEUROPATHY
     Dosage: 1 MG
     Route: 048
  9. METHYCOBAL [Concomitant]
     Active Substance: METHYLCOBALAMIN
     Indication: TYPE 2 DIABETES MELLITUS
     Dosage: 1500 MICROG
     Route: 048
  10. LEVOTOMIN [LEVOMEPROMAZINE HYDROCHLORIDE] [Concomitant]
     Active Substance: LEVOMEPROMAZINE HYDROCHLORIDE
     Indication: SCHIZOPHRENIA
     Dosage: 75MG
     Route: 048
  11. ALLELOCK [Concomitant]
     Active Substance: OLOPATADINE HYDROCHLORIDE
     Indication: DYSLIPIDAEMIA
     Dosage: 10  MG
     Route: 048
  12. NOVAMINE [Concomitant]
     Active Substance: ALANINE\ARGININE\ASPARTIC ACID\GLUTAMIC ACID\GLYCINE\HISTIDINE\ISOLEUCINE\LEUCINE\LYSINE ACETATE\METHIONINE\PHENYLALANINE\PROLINE\SERINE\THREONINE\TRYPTOPHAN\TYROSINE\VALINE
     Indication: CHRONIC GASTRITIS
     Dosage: 20 MG
     Route: 048
  13. OZEMPIC [Suspect]
     Active Substance: SEMAGLUTIDE
     Indication: TYPE 2 DIABETES MELLITUS
     Dosage: 0.25MG/2WEEKS
     Route: 058
     Dates: start: 20200721
  14. TETRAMIDE [Concomitant]
     Active Substance: MIANSERIN
     Indication: DEPRESSION
     Dosage: 30 MG
     Route: 048
  15. CLOPIDOGREL [Concomitant]
     Active Substance: CLOPIDOGREL BISULFATE
     Indication: CEREBRAL INFARCTION
     Dosage: 75MG
     Route: 048
  16. METGLUCO [Concomitant]
     Active Substance: METFORMIN HYDROCHLORIDE
     Indication: TYPE 2 DIABETES MELLITUS
     Dosage: 2000 MG
     Route: 048
  17. SEIBULE [Concomitant]
     Active Substance: MIGLITOL
     Indication: TYPE 2 DIABETES MELLITUS
     Dosage: 110 MG
     Route: 048
  18. NEXIUM [Concomitant]
     Active Substance: ESOMEPRAZOLE MAGNESIUM
     Indication: CEREBRAL INFARCTION
     Dosage: 20MG
     Route: 048

REACTIONS (7)
  - Nausea [Unknown]
  - Injection site pain [Not Recovered/Not Resolved]
  - Decreased appetite [Unknown]
  - Oedema peripheral [Not Recovered/Not Resolved]
  - Cerebral infarction [Not Recovered/Not Resolved]
  - Vomiting [Not Recovered/Not Resolved]
  - Dehydration [Recovered/Resolved]

NARRATIVE: CASE EVENT DATE: 20200721
